FAERS Safety Report 23476687 (Version 1)
Quarter: 2024Q1

REPORT INFORMATION
  Report Type: Report from Study
  Country: US (occurrence: US)
  Receive Date: 20240204
  Receipt Date: 20240204
  Transmission Date: 20240410
  Serious: No
  Sender: FDA-Public Use
  Company Number: US-EXELIXIS-CABO-23063991

PATIENT
  Age: 60 Year
  Sex: Female

DRUGS (2)
  1. CABOMETYX [Suspect]
     Active Substance: CABOZANTINIB S-MALATE
     Indication: Renal cancer
     Dosage: 20 MG, TAKE 2 TABLETS ON MONDAY, WEDNESDAY, AND FRIDAY AND TAKE 1 TABLET ON TUESDAY, THURSDAY, SATUR
     Route: 048
     Dates: start: 202304, end: 20230503
  2. CABOMETYX [Suspect]
     Active Substance: CABOZANTINIB S-MALATE
     Dosage: 20 MG, TAKE 2 TABLETS ON MONDAY, WEDNESDAY, AND FRIDAY AND TAKE 1 TABLET ON TUESDAY, THURSDAY, SATUR
     Route: 048
     Dates: start: 20230513

REACTIONS (2)
  - Urinary tract infection [Unknown]
  - Inappropriate schedule of product administration [Unknown]

NARRATIVE: CASE EVENT DATE: 20230401
